FAERS Safety Report 5078323-5 (Version None)
Quarter: 2006Q3

REPORT INFORMATION
  Report Type: 
  Country: None (occurrence: None)
  Receive Date: 20060811
  Receipt Date: 20060802
  Transmission Date: 20061208
  Serious: Yes (Other)
  Sender: FDA-Public Use
  Company Number: 2006UW15628

PATIENT
  Age: 84 Year
  Sex: Female

DRUGS (5)
  1. ATENOLOL [Suspect]
     Indication: HYPERTENSION
     Route: 048
     Dates: start: 20060607, end: 20060706
  2. ATENOLOL [Interacting]
     Indication: ARRHYTHMIA
     Route: 048
     Dates: start: 20060607, end: 20060706
  3. BROMAZEPAM [Interacting]
     Indication: ANXIETY
  4. NEOZINE [Interacting]
     Indication: INSOMNIA
  5. PROPRANOLOL [Interacting]

REACTIONS (4)
  - DRUG INTERACTION [None]
  - PHARMACEUTICAL PRODUCT COMPLAINT [None]
  - RASH [None]
  - SKIN LESION [None]
